FAERS Safety Report 8476747-7 (Version None)
Quarter: 2012Q2

REPORT INFORMATION
  Report Type: 
  Country: None (occurrence: None)
  Receive Date: 20120628
  Receipt Date: 20120620
  Transmission Date: 20120825
  Serious: Yes (Other)
  Sender: FDA-Public Use
  Company Number: JP-MERCK-1206USA04115

PATIENT
  Age: 77 Year
  Sex: Female

DRUGS (2)
  1. FOSAMAX [Suspect]
     Indication: OSTEOPOROSIS
     Dosage: DAILY DOSAGE UNKNOWN
     Route: 048
  2. LETROZOLE [Suspect]
     Indication: BREAST CANCER
     Dosage: DAILY DOSAGE UNKNOWN
     Route: 048

REACTIONS (1)
  - IDIOPATHIC THROMBOCYTOPENIC PURPURA [None]
